FAERS Safety Report 6994893-1 (Version None)
Quarter: 2010Q3

REPORT INFORMATION
  Report Type: 
  Country: None (occurrence: None)
  Receive Date: 20100917
  Receipt Date: 20090109
  Transmission Date: 20110219
  Serious: Yes (Other)
  Sender: FDA-Public Use
  Company Number: HQWYE457927JUL04

PATIENT
  Sex: Female

DRUGS (5)
  1. PREMPRO [Suspect]
     Indication: HORMONE REPLACEMENT THERAPY
     Dosage: UNKNOWN
     Route: 048
     Dates: start: 19950101, end: 20000101
  2. OGEN [Suspect]
  3. ESTROPIPATE [Suspect]
  4. PREMARIN [Suspect]
  5. VIVELLE [Suspect]

REACTIONS (2)
  - BREAST CANCER [None]
  - OVARIAN CANCER [None]
